FAERS Safety Report 7008717-X (Version None)
Quarter: 2010Q3

REPORT INFORMATION
  Report Type: 
  Country: None (occurrence: None)
  Receive Date: 20100921
  Receipt Date: 20100908
  Transmission Date: 20110219
  Serious: Yes (Other)
  Sender: FDA-Public Use
  Company Number: 2010089539

PATIENT
  Age: 62 Year
  Sex: Female
  Weight: 75 kg

DRUGS (8)
  1. DALTEPARIN SODIUM [Suspect]
     Indication: PULMONARY EMBOLISM
     Dosage: 15000 IU, 1X/DAY, SUBCUTANEOUS
     Route: 058
     Dates: start: 20100623, end: 20100712
  2. RAMIPRIL [Concomitant]
  3. PANTOPRAZOLE SODIUM [Concomitant]
  4. HYDROCHLOROTHIAZIDE [Concomitant]
  5. CRESTOR [Concomitant]
  6. SENOKOT [Concomitant]
  7. DEXAMETHASONE [Concomitant]
  8. ACETAMINOPHEN [Concomitant]

REACTIONS (4)
  - DEEP VEIN THROMBOSIS [None]
  - OSTEOLYSIS [None]
  - RESPIRATORY DISORDER [None]
  - THROMBOPHLEBITIS SUPERFICIAL [None]
